FAERS Safety Report 21923293 (Version 6)
Quarter: 2023Q2

REPORT INFORMATION
  Report Type: Report from Study
  Country: US (occurrence: US)
  Receive Date: 20230129
  Receipt Date: 20230607
  Transmission Date: 20230721
  Serious: Yes (Other)
  Sender: FDA-Public Use
  Company Number: US-UCBSA-2023004051

PATIENT
  Sex: Male

DRUGS (2)
  1. CERTOLIZUMAB PEGOL [Suspect]
     Active Substance: CERTOLIZUMAB PEGOL
     Indication: Ankylosing spondylitis
     Dosage: 400 MG (2X200 MG/ML) SUBCUTANEOUS INJECTIONS AT WEEKS 0, 2,4 THEN 2 SUBCUTANEOUS INJECTIONS EVERY 4
     Route: 058
     Dates: start: 20230111, end: 20230405
  2. CERTOLIZUMAB PEGOL [Suspect]
     Active Substance: CERTOLIZUMAB PEGOL
     Dosage: DRUG ADMINISTERED FOR 2 YEARS, 8 YEAR AGO

REACTIONS (6)
  - Disease progression [Unknown]
  - Nasal disorder [Not Recovered/Not Resolved]
  - Infection [Not Recovered/Not Resolved]
  - Dysgeusia [Not Recovered/Not Resolved]
  - Sinusitis [Recovering/Resolving]
  - Rhinitis [Recovered/Resolved]

NARRATIVE: CASE EVENT DATE: 20230101
